FAERS Safety Report 9438987 (Version 6)
Quarter: 2014Q1

REPORT INFORMATION
  Report Type: Report from Study
  Country: CA (occurrence: CA)
  Receive Date: 20130802
  Receipt Date: 20140224
  Transmission Date: 20141002
  Serious: Yes (Hospitalization, Other)
  Sender: FDA-Public Use
  Company Number: PHHY2013CA034093

PATIENT
  Age: 72 Year
  Sex: Male

DRUGS (9)
  1. GLEEVEC [Suspect]
     Indication: ACUTE LYMPHOCYTIC LEUKAEMIA
     Dosage: 400 MG, BID
     Route: 048
     Dates: start: 20130326
  2. GLEEVEC [Suspect]
     Dosage: 600 MG (400 MG AM AND 200 MG PM), QD
     Route: 048
  3. GLEEVEC [Suspect]
     Dosage: 600 MG, (400 MG AM DOSE AND 200 MG, PM DOSE) DAILY
     Route: 048
     Dates: end: 20140205
  4. DIGOXIN SANDOZ [Suspect]
     Indication: ARRHYTHMIA
     Dosage: UNK UKN, UNK
  5. PREDNISONE [Concomitant]
     Dosage: UNK UKN, UNK
  6. PANTOLOC//PANTOPRAZOLE SODIUM SESQUIHYDRATE [Concomitant]
     Dosage: UNK UKN, UNK
  7. METOPROLOL [Concomitant]
     Dosage: UNK UKN, UNK
  8. DILTIAZEM [Concomitant]
     Dosage: UNK UKN, UNK
  9. ATORVASTATIN [Concomitant]
     Dosage: UNK UKN, UNK

REACTIONS (21)
  - Pneumonia [Unknown]
  - Haemoglobin decreased [Unknown]
  - Arrhythmia [Unknown]
  - Sunburn [Unknown]
  - Feeling cold [Unknown]
  - Eating disorder [Unknown]
  - Dandruff [Unknown]
  - Solar lentigo [Unknown]
  - Eyelid oedema [Unknown]
  - Weight decreased [Not Recovered/Not Resolved]
  - Abdominal distension [Unknown]
  - Dysgeusia [Unknown]
  - Skin exfoliation [Unknown]
  - Rash erythematous [Unknown]
  - Swelling [Unknown]
  - Abdominal discomfort [Unknown]
  - Decreased appetite [Not Recovered/Not Resolved]
  - Nausea [Unknown]
  - Joint swelling [Unknown]
  - Swelling face [Unknown]
  - Local swelling [Unknown]
